FAERS Safety Report 24713270 (Version 1)
Quarter: 2024Q4

REPORT INFORMATION
  Report Type: Spontaneous
  Country: US (occurrence: US)
  Receive Date: 20241209
  Receipt Date: 20241209
  Transmission Date: 20250115
  Serious: No
  Sender: REGENERON
  Company Number: US-REGENERON PHARMACEUTICALS, INC.-2024-016929

PATIENT
  Sex: Female

DRUGS (4)
  1. EYLEA [Suspect]
     Active Substance: AFLIBERCEPT
     Indication: Retinal vein occlusion
     Dosage: 2 MG, MONTHLY (4-5 WEEKS), LEFT EYE FORMULATION: UNKNOWN
     Dates: start: 20211220, end: 20231108
  2. EYLEA [Suspect]
     Active Substance: AFLIBERCEPT
     Indication: Cystoid macular oedema
  3. AVASTIN [Concomitant]
     Active Substance: BEVACIZUMAB
     Indication: Retinal vein occlusion
     Dosage: UNK
     Dates: start: 20211111, end: 20221022
  4. AVASTIN [Concomitant]
     Active Substance: BEVACIZUMAB
     Indication: Cystoid macular oedema

REACTIONS (2)
  - Off label use [Recovered/Resolved]
  - Drug ineffective for unapproved indication [Unknown]

NARRATIVE: CASE EVENT DATE: 20211220
